FAERS Safety Report 6773773-0 (Version None)
Quarter: 2010Q2

REPORT INFORMATION
  Report Type: 
  Country: None (occurrence: None)
  Receive Date: 20100617
  Receipt Date: 20100607
  Transmission Date: 20101027
  Serious: No
  Sender: FDA-Public Use
  Company Number: US-BIOGENIDEC-2010BI019385

PATIENT
  Sex: Female

DRUGS (1)
  1. TYSABRI [Suspect]
     Indication: MULTIPLE SCLEROSIS
     Route: 042
     Dates: start: 20100401

REACTIONS (10)
  - ABDOMINAL DISTENSION [None]
  - ARTHROPOD BITE [None]
  - BLADDER PAIN [None]
  - DYSURIA [None]
  - OEDEMA [None]
  - PYREXIA [None]
  - RASH MACULAR [None]
  - SINUSITIS [None]
  - URINARY INCONTINENCE [None]
  - URINARY TRACT INFECTION [None]
